FAERS Safety Report 6826460-4 (Version None)
Quarter: 2010Q3

REPORT INFORMATION
  Report Type: 
  Country: None (occurrence: None)
  Receive Date: 20100709
  Receipt Date: 20100608
  Transmission Date: 20110219
  Serious: No
  Sender: FDA-Public Use
  Company Number: US-BAYER-201025969NA

PATIENT
  Age: 84 Year
  Sex: Female

DRUGS (3)
  1. ULTRAVIST 300 [Suspect]
     Indication: COMPUTERISED TOMOGRAM ABDOMEN
     Dosage: TOTAL DAILY DOSE: 78 ML  UNIT DOSE: 300 ML
     Route: 042
     Dates: start: 20100608, end: 20100608
  2. METOPROLOL [Concomitant]
  3. VOLUVEN [Concomitant]
     Route: 048

REACTIONS (4)
  - CHILLS [None]
  - DYSPHAGIA [None]
  - NAUSEA [None]
  - REGURGITATION [None]
